FAERS Safety Report 11910200 (Version 6)
Quarter: 2018Q4

REPORT INFORMATION
  Report Type: Spontaneous
  Country: US (occurrence: US)
  Receive Date: 20160112
  Receipt Date: 20181121
  Transmission Date: 20190204
  Serious: No
  Sender: FDA-Public Use
  Company Number: US-PFIZER INC-2015476513

PATIENT
  Age: 38 Year
  Sex: Male
  Weight: 77 kg

DRUGS (3)
  1. LYRICA [Suspect]
     Active Substance: PREGABALIN
     Dosage: 300 MG, 1X/DAY
     Route: 048
  2. LYRICA [Suspect]
     Active Substance: PREGABALIN
     Dosage: 300 MG, 2X/DAY (1 CAPSULE 2 TIMES A DAY)
     Route: 048
     Dates: start: 20160707
  3. LYRICA [Suspect]
     Active Substance: PREGABALIN
     Indication: FIBROMYALGIA
     Dosage: 300 MG, 2X/DAY (1 CAPSULE 2 TIMES A DAY)
     Route: 048

REACTIONS (6)
  - Intentional product use issue [Unknown]
  - Pruritus [Recovered/Resolved]
  - Insomnia [Recovered/Resolved]
  - Overdose [Unknown]
  - Pain [Not Recovered/Not Resolved]
  - Withdrawal syndrome [Unknown]
